FAERS Safety Report 6565247-7 (Version None)
Quarter: 2010Q1

REPORT INFORMATION
  Report Type: 
  Country: None (occurrence: None)
  Receive Date: 20100201
  Receipt Date: 20100121
  Transmission Date: 20100710
  Serious: Yes (Death, Hospitalization, Other)
  Sender: FDA-Public Use
  Company Number: US-ROCHE-675213

PATIENT
  Sex: Female
  Weight: 103.4 kg

DRUGS (3)
  1. CAPECITABINE [Suspect]
     Indication: BREAST CANCER
     Dosage: ROUTE: MOUTH. STRENGTH: 500.
     Route: 048
     Dates: start: 20090926
  2. CAPECITABINE [Suspect]
     Route: 048
     Dates: start: 20091005, end: 20091015
  3. CAPECITABINE [Suspect]
     Route: 048
     Dates: end: 20091104

REACTIONS (10)
  - ABDOMINAL PAIN UPPER [None]
  - APHASIA [None]
  - DECREASED APPETITE [None]
  - DIVERTICULITIS [None]
  - DYSARTHRIA [None]
  - FALL [None]
  - MALIGNANT NEOPLASM PROGRESSION [None]
  - NAUSEA [None]
  - PULMONARY EMBOLISM [None]
  - VASOGENIC CEREBRAL OEDEMA [None]
